FAERS Safety Report 21526077 (Version 1)
Quarter: 2022Q4

REPORT INFORMATION
  Report Type: Spontaneous
  Country: US (occurrence: US)
  Receive Date: 20221031
  Receipt Date: 20221031
  Transmission Date: 20230113
  Serious: No
  Sender: FDA-Public Use
  Company Number: US-JNJFOC-20221046806

PATIENT
  Age: 55 Year
  Sex: Female

DRUGS (1)
  1. WOMENS ROGAINE [Suspect]
     Active Substance: MINOXIDIL
     Indication: Alopecia
     Dosage: FREQUENCY: ONLY 2 TIMES ONCE ON MONDAY AND THEN ONCE ON WEDNESDAY
     Route: 061
     Dates: start: 20221017

REACTIONS (1)
  - Application site reaction [Recovered/Resolved]

NARRATIVE: CASE EVENT DATE: 20221017
